FAERS Safety Report 4846719-X (Version None)
Quarter: 2005Q4

REPORT INFORMATION
  Report Type: 
  Country: None (occurrence: None)
  Receive Date: 20051206
  Receipt Date: 20050414
  Transmission Date: 20060501
  Serious: Yes (Hospitalization)
  Sender: FDA-Public Use
  Company Number: US-MERCK-0504USA02304

PATIENT
  Age: 48 Year
  Sex: Female
  Weight: 94 kg

DRUGS (1)
  1. VIOXX [Suspect]
     Route: 048

REACTIONS (17)
  - ACUTE MYOCARDIAL INFARCTION [None]
  - ADVERSE EVENT [None]
  - ANGINA PECTORIS [None]
  - ARTERIOSCLEROSIS [None]
  - BILIARY DYSKINESIA [None]
  - CARDIAC MURMUR [None]
  - CORONARY ARTERY DISEASE [None]
  - GLUCOSE TOLERANCE IMPAIRED [None]
  - HIATUS HERNIA [None]
  - INJURY [None]
  - MYOCARDIAL ISCHAEMIA [None]
  - NERVOUS SYSTEM DISORDER [None]
  - OBESITY [None]
  - SHOCK [None]
  - STENT OCCLUSION [None]
  - SUPRAVENTRICULAR EXTRASYSTOLES [None]
  - VENTRICULAR EXTRASYSTOLES [None]
